FAERS Safety Report 6029537-9 (Version None)
Quarter: 2009Q1

REPORT INFORMATION
  Report Type: 
  Country: None (occurrence: None)
  Receive Date: 20090107
  Receipt Date: 20090105
  Transmission Date: 20090719
  Serious: Yes (Death, Life-Threatening)
  Sender: FDA-Public Use
  Company Number: SE-JNJFOC-20090100389

PATIENT
  Age: 67 Year
  Sex: Female

DRUGS (17)
  1. LEVOFLOXACIN [Suspect]
     Indication: INFECTION
     Route: 048
  2. AMARYL [Interacting]
     Indication: DIABETES MELLITUS
     Route: 048
  3. OMEPREZOL [Concomitant]
     Route: 065
  4. METOPROLOL [Concomitant]
     Route: 065
  5. NITROLINGUAL [Concomitant]
     Route: 065
  6. FOLACIN [Concomitant]
     Route: 065
  7. ALVEDON [Concomitant]
     Route: 065
  8. SOLU-CORTEF [Concomitant]
     Route: 065
  9. DIGOXIN [Concomitant]
     Route: 065
  10. FURIX [Concomitant]
     Route: 065
  11. SPIRONOLAKTON [Concomitant]
     Route: 065
  12. PREDNISOLONE [Concomitant]
     Route: 065
  13. SOBRIL [Concomitant]
     Route: 065
  14. DEXOFEN [Concomitant]
     Route: 065
  15. ALLOPURINOL NORDIC [Concomitant]
     Route: 065
  16. IDEOS [Concomitant]
     Dosage: 500/400IU
     Route: 065
  17. ENALAPRIL MALEATE [Concomitant]
     Route: 065

REACTIONS (3)
  - DRUG INTERACTION [None]
  - HYPOGLYCAEMIA [None]
  - NEUTROPENIC INFECTION [None]
